FAERS Safety Report 6849011-7 (Version None)
Quarter: 2010Q3

REPORT INFORMATION
  Report Type: 
  Country: None (occurrence: None)
  Receive Date: 20100716
  Receipt Date: 20100708
  Transmission Date: 20110219
  Serious: Yes (Hospitalization)
  Sender: FDA-Public Use
  Company Number: NL-ABBOTT-10P-114-0631818-00

PATIENT
  Sex: Male

DRUGS (5)
  1. HUMIRA [Suspect]
     Indication: CROHN'S DISEASE
     Route: 058
     Dates: start: 20091224, end: 20100303
  2. CIPROFLOXACIN/PLACEBO [Concomitant]
     Indication: CROHN'S DISEASE
     Route: 048
     Dates: start: 20091224, end: 20100305
  3. TEMAZEPAM [Concomitant]
     Indication: PRODUCT USED FOR UNKNOWN INDICATION
  4. AMOXICILLIN [Concomitant]
     Indication: INFECTION PROPHYLAXIS
     Dates: start: 20091218, end: 20091223
  5. IMODIUM [Concomitant]
     Indication: DIARRHOEA
     Dates: start: 20100218

REACTIONS (3)
  - CROHN'S DISEASE [None]
  - DIARRHOEA [None]
  - GENERAL PHYSICAL HEALTH DETERIORATION [None]
